FAERS Safety Report 24999035 (Version 1)
Quarter: 2025Q1

REPORT INFORMATION
  Report Type: Report from Study
  Country: FR (occurrence: FR)
  Receive Date: 20250222
  Receipt Date: 20250222
  Transmission Date: 20250409
  Serious: Yes (Other)
  Sender: AUROBINDO
  Company Number: FR-EXPCORP-2025000059

PATIENT
  Age: 17 Year
  Sex: Male

DRUGS (2)
  1. ISOTRETINOIN [Suspect]
     Active Substance: ISOTRETINOIN
     Indication: Acne
     Route: 065
  2. DOXYCYCLINE [Suspect]
     Active Substance: DOXYCYCLINE
     Indication: Acne
     Route: 065

REACTIONS (4)
  - Acne fulminans [Recovering/Resolving]
  - Condition aggravated [Unknown]
  - Hidradenitis [Recovered/Resolved]
  - Drug ineffective [Unknown]
